FAERS Safety Report 9387331 (Version 4)
Quarter: 2013Q4

REPORT INFORMATION
  Report Type: Spontaneous
  Country: US (occurrence: US)
  Receive Date: 20130708
  Receipt Date: 20131226
  Transmission Date: 20140711
  Serious: Yes (Hospitalization)
  Sender: FDA-Public Use
  Company Number: US-B.I. PHARMACEUTICALS,INC./RIDGEFIELD-2013-BI-19255BP

PATIENT
  Age: 91 Year
  Sex: Female

DRUGS (16)
  1. COMBIVENT [Suspect]
     Indication: BRONCHITIS CHRONIC
     Dosage: STRENGTH: 18 MCG / 103 MCG; DAILY DOSE: 108 MCG / 618 MCG
     Route: 055
     Dates: start: 2006
  2. COMBIVENT [Suspect]
     Indication: CHRONIC OBSTRUCTIVE PULMONARY DISEASE
     Dosage: STRENGTH: 18 MCG / 103 MCG; DAILY DOSE: 144 MCG / 824 MCG
     Route: 055
     Dates: start: 2000
  3. COMBIVENT [Suspect]
     Dosage: STRENGTH: 18 MCG / 103 MCG; DAILY DOSE: 108 MCG / 618 MCG
     Route: 055
     Dates: start: 2006
  4. COMBIVENT [Suspect]
     Indication: BRONCHITIS CHRONIC
     Dosage: STRENGTH: 20 MCG / 100 MCG; DAILY DOSE: 120 MCG / 600 MCG
     Route: 055
     Dates: start: 20130702
  5. LASIX [Concomitant]
     Indication: CARDIAC FAILURE CONGESTIVE
     Dosage: 80 MG
     Route: 048
     Dates: start: 1996
  6. LASIX [Concomitant]
     Indication: FLUID RETENTION
  7. SYNTHROID [Concomitant]
     Indication: THYROID DISORDER
     Dosage: 0.75 MG
     Route: 048
     Dates: start: 1996
  8. CLONAZEPAM [Concomitant]
     Indication: CONVULSION
     Dosage: 0.5 MG
     Route: 048
     Dates: start: 1996
  9. PROZAC [Concomitant]
     Indication: NERVOUS SYSTEM DISORDER
     Dosage: 20 MG
     Route: 048
     Dates: start: 1996
  10. DIOVAN [Concomitant]
     Indication: HYPERTENSION
     Dosage: 80 MG
     Route: 048
     Dates: start: 1996
  11. POTASSIUM [Concomitant]
     Indication: CARDIAC FAILURE CONGESTIVE
     Dosage: 1 MEQ
     Route: 048
     Dates: start: 1996
  12. POTASSIUM [Concomitant]
     Dosage: 20 MEQ
     Route: 048
  13. NORVASC [Concomitant]
     Indication: HYPERTENSION
     Dosage: 5 MG
     Route: 048
     Dates: start: 1996
  14. LIPITOR [Concomitant]
     Indication: BLOOD CHOLESTEROL INCREASED
     Dosage: 10 MG
     Route: 048
     Dates: start: 1996
  15. COUMADIN [Concomitant]
     Indication: ANTICOAGULANT THERAPY
     Route: 048
     Dates: start: 2005
  16. KEPPRA [Concomitant]
     Indication: CONVULSION
     Dosage: 1500 MG
     Route: 048

REACTIONS (7)
  - Cardiac failure congestive [Recovered/Resolved]
  - Thrombosis [Recovered/Resolved]
  - Bladder prolapse [Not Recovered/Not Resolved]
  - Pollakiuria [Not Recovered/Not Resolved]
  - Skin irritation [Not Recovered/Not Resolved]
  - Overdose [Not Recovered/Not Resolved]
  - Overdose [Not Recovered/Not Resolved]
